FAERS Safety Report 7708795-6 (Version None)
Quarter: 2011Q3

REPORT INFORMATION
  Report Type: 
  Country: None (occurrence: None)
  Receive Date: 20110824
  Receipt Date: 20110824
  Transmission Date: 20111222
  Serious: No
  Sender: FDA-Public Use
  Company Number: None

PATIENT
  Sex: Male
  Weight: 95.7 kg

DRUGS (6)
  1. ELOXATIN [Suspect]
     Dosage: 660 MG
  2. FLUOROURACIL [Suspect]
     Dosage: 3147 MG
  3. LEUCOVORIN CALCIUM [Suspect]
     Dosage: 3147 MG
  4. PREDNISONE [Concomitant]
  5. DECADRON [Concomitant]
  6. BEVACIZUMAB (RHUMAB VEGF) [Suspect]
     Dosage: 1905 MG

REACTIONS (2)
  - MYELODYSPLASTIC SYNDROME [None]
  - SIDEROBLASTIC ANAEMIA [None]
